FAERS Safety Report 22660741 (Version 1)
Quarter: 2023Q2

REPORT INFORMATION
  Report Type: Spontaneous
  Country: US (occurrence: None)
  Receive Date: 20230630
  Receipt Date: 20230630
  Transmission Date: 20230721
  Serious: Yes (Other)
  Sender: FDA-Public Use
  Company Number: None

PATIENT
  Age: 80 Year
  Sex: Male
  Weight: 60.75 kg

DRUGS (1)
  1. SOLU-MEDROL [Suspect]
     Active Substance: METHYLPREDNISOLONE SODIUM SUCCINATE
     Dosage: OTHER FREQUENCY : PRIOR TO EACH IVIG;?
     Route: 042
     Dates: start: 20230614, end: 20230615

REACTIONS (6)
  - Confusional state [None]
  - Dizziness [None]
  - Asthenia [None]
  - Gait disturbance [None]
  - Pain in extremity [None]
  - Tremor [None]

NARRATIVE: CASE EVENT DATE: 20230619
